FAERS Safety Report 9353980 (Version 1)
Quarter: 2013Q2

REPORT INFORMATION
  Report Type: Spontaneous
  Country: US (occurrence: US)
  Receive Date: 20130618
  Receipt Date: 20130618
  Transmission Date: 20140414
  Serious: Yes (Other)
  Sender: FDA-Public Use
  Company Number: US-COVIDIEN/TYCO HEALTHCARE/MALLINCKRODT-T201302779

PATIENT
  Sex: Female

DRUGS (2)
  1. GABLOFEN [Suspect]
     Indication: MUSCLE SPASTICITY
     Dosage: UNK, 2000 MCG/ML
  2. GABLOFEN [Suspect]
     Dosage: UNK, 500 MCG/ML
     Route: 037

REACTIONS (18)
  - Infection [Unknown]
  - Seroma [Recovered/Resolved]
  - Balance disorder [Unknown]
  - Urinary tract infection [Recovered/Resolved]
  - Dyskinesia [Unknown]
  - Pain in extremity [Unknown]
  - Hypokinesia [Unknown]
  - Sensory disturbance [Unknown]
  - Diplopia [Recovered/Resolved]
  - Orthostatic hypotension [Unknown]
  - Urinary retention [Unknown]
  - Insomnia [Unknown]
  - Muscle tightness [Unknown]
  - Paraesthesia [Unknown]
  - Gait disturbance [Unknown]
  - Dizziness [Unknown]
  - Malaise [Unknown]
  - Drug effect decreased [Unknown]
